FAERS Safety Report 7991944-2 (Version None)
Quarter: 2011Q4

REPORT INFORMATION
  Report Type: 
  Country: None (occurrence: None)
  Receive Date: 20111219
  Receipt Date: 20110314
  Transmission Date: 20120403
  Serious: No
  Sender: FDA-Public Use
  Company Number: US-ASTRAZENECA-2011SE14077

PATIENT
  Age: 88 Year

DRUGS (2)
  1. CRESTOR [Suspect]
     Route: 048
  2. CRESTOR [Suspect]
     Route: 048

REACTIONS (6)
  - CATARACT [None]
  - GLAUCOMA [None]
  - HYPERTENSION [None]
  - IRRITABLE BOWEL SYNDROME [None]
  - HYPERTONIC BLADDER [None]
  - DIABETES MELLITUS [None]
